FAERS Safety Report 5265865-2 (Version None)
Quarter: 2007Q1

REPORT INFORMATION
  Report Type: 
  Country: None (occurrence: None)
  Receive Date: 20070312
  Receipt Date: 20070312
  Transmission Date: 20070707
  Serious: Yes (Other)
  Sender: FDA-Public Use
  Company Number: None

PATIENT
  Age: 38 Year
  Sex: Male
  Weight: 90.7194 kg

DRUGS (1)
  1. BUPROPION HCL [Suspect]
     Indication: DEPRESSION
     Dosage: 300 MG  1 QD PO
     Route: 048
     Dates: start: 20070219, end: 20070227

REACTIONS (3)
  - AKATHISIA [None]
  - CONDITION AGGRAVATED [None]
  - DEPRESSION [None]
